FAERS Safety Report 10015798 (Version 1)
Quarter: 2014Q1

REPORT INFORMATION
  Report Type: Spontaneous
  Country: US (occurrence: US)
  Receive Date: 20140317
  Receipt Date: 20140317
  Transmission Date: 20141002
  Serious: No
  Sender: FDA-Public Use
  Company Number: US-PFIZER INC-2014074811

PATIENT
  Age: 34 Year
  Sex: Female
  Weight: 77.1 kg

DRUGS (3)
  1. CHANTIX [Suspect]
     Indication: SMOKING CESSATION THERAPY
     Dosage: UNK
     Dates: start: 201208
  2. ZOLOFT [Suspect]
     Indication: DEPRESSION
     Dosage: 50 MG, DAILY
  3. LITHIUM CARBONATE [Suspect]
     Indication: DEPRESSION
     Dosage: 300 MG, 2X/DAY

REACTIONS (1)
  - Malaise [Recovered/Resolved]
